FAERS Safety Report 5201960-1 (Version None)
Quarter: 2007Q1

REPORT INFORMATION
  Report Type: 
  Country: None (occurrence: None)
  Receive Date: 20070104
  Receipt Date: 20070104
  Transmission Date: 20070707
  Serious: Yes (Hospitalization)
  Sender: FDA-Public Use
  Company Number: None

PATIENT
  Sex: Male
  Weight: 55.1 kg

DRUGS (3)
  1. METHOTREXATE [Suspect]
     Indication: B PRECURSOR TYPE ACUTE LEUKAEMIA
     Dosage: 14350 MG
  2. VINCRISTINE SULFATE [Suspect]
     Dosage: 4 MG
  3. MERCAPTOPURINE [Suspect]
     Dosage: 392 MG

REACTIONS (6)
  - CEREBRAL INFARCTION [None]
  - DRUG CLEARANCE DECREASED [None]
  - DRUG TOXICITY [None]
  - DYSARTHRIA [None]
  - GAIT DISTURBANCE [None]
  - HEMIPARESIS [None]
